FAERS Safety Report 12929978 (Version 2)
Quarter: 2016Q4

REPORT INFORMATION
  Report Type: Spontaneous
  Country: CH (occurrence: CH)
  Receive Date: 20161110
  Receipt Date: 20161201
  Transmission Date: 20170207
  Serious: Yes (Other)
  Sender: FDA-Public Use
  Company Number: CH-ALEXION-A201608532

PATIENT
  Age: 23 Year
  Sex: Female

DRUGS (3)
  1. CYCLOSPORIN A [Suspect]
     Active Substance: CYCLOSPORINE
     Indication: PRODUCT USED FOR UNKNOWN INDICATION
     Dosage: UNK
     Route: 065
     Dates: start: 201606
  2. SOLIRIS [Suspect]
     Active Substance: ECULIZUMAB
     Indication: PAROXYSMAL NOCTURNAL HAEMOGLOBINURIA
     Dosage: UNK
     Route: 042
     Dates: start: 201606
  3. ATGAM [Suspect]
     Active Substance: EQUINE THYMOCYTE IMMUNE GLOBULIN
     Indication: PRODUCT USED FOR UNKNOWN INDICATION
     Dosage: UNK
     Route: 065
     Dates: start: 201606

REACTIONS (1)
  - Thrombocytopenia [Not Recovered/Not Resolved]
